FAERS Safety Report 5285183-6 (Version None)
Quarter: 2007Q2

REPORT INFORMATION
  Report Type: 
  Country: None (occurrence: None)
  Receive Date: 20070403
  Receipt Date: 20070322
  Transmission Date: 20071010
  Serious: Yes (Other)
  Sender: FDA-Public Use
  Company Number: FR-PFIZER INC-2007018428

PATIENT
  Sex: Female
  Weight: 63 kg

DRUGS (3)
  1. TAHOR [Suspect]
     Indication: BLOOD CHOLESTEROL
  2. AMLOR [Suspect]
     Indication: HYPERTENSION
  3. ALL OTHER THERAPEUTIC PRODUCTS [Suspect]
     Indication: TOOTH DISCOLOURATION

REACTIONS (4)
  - BLOOD PRESSURE INCREASED [None]
  - EMPHYSEMA [None]
  - LARYNGEAL OEDEMA [None]
  - SWELLING FACE [None]
